FAERS Safety Report 4619046-3 (Version None)
Quarter: 2005Q1

REPORT INFORMATION
  Report Type: 
  Country: None (occurrence: None)
  Receive Date: 20050317
  Receipt Date: 20050317
  Transmission Date: 20050727
  Serious: No
  Sender: FDA-Public Use
  Company Number: None

PATIENT
  Age: 46 Year
  Sex: Male

DRUGS (19)
  1. MORPHINE [Suspect]
  2. VALPROIC ACID [Suspect]
     Dosage: 250MG PO TID
     Route: 048
     Dates: start: 20041101, end: 20041223
  3. DEPAKOTE [Concomitant]
  4. RISPERDAL [Concomitant]
  5. ATENOLOL [Concomitant]
  6. DULCOSATE [Concomitant]
  7. MONOPRIL [Concomitant]
  8. OMEPRAZOLE [Concomitant]
  9. VANA CREAM [Concomitant]
  10. B-12 [Concomitant]
  11. NITROGLYCERIN [Concomitant]
  12. PRAVASTATIN [Concomitant]
  13. BENADRYL [Concomitant]
  14. PLAVIX [Concomitant]
  15. BUTALBITAL [Concomitant]
  16. ZANTAC [Concomitant]
  17. VALIUM [Concomitant]
  18. SERZONE [Concomitant]
  19. MS CONTIN [Concomitant]

REACTIONS (2)
  - HYPERAMMONAEMIA [None]
  - MENTAL STATUS CHANGES [None]
